FAERS Safety Report 4397968-9 (Version None)
Quarter: 2004Q3

REPORT INFORMATION
  Report Type: 
  Country: None (occurrence: None)
  Receive Date: 20040713
  Receipt Date: 20040629
  Transmission Date: 20050211
  Serious: Yes (Hospitalization)
  Sender: FDA-Public Use
  Company Number: US-JNJFOC-20040402275

PATIENT
  Age: 32 Year
  Sex: Female

DRUGS (11)
  1. ELMIRON [Suspect]
     Indication: CYSTITIS INTERSTITIAL
     Dosage: 100 MG, 3 IN 1 DAY, ORAL
     Route: 048
  2. VICODIN [Concomitant]
  3. ROBAXIN [Concomitant]
  4. PYRIDIUM (PHENAZOPYRIDINE HYDROCHLORIDE) [Concomitant]
  5. METHADONE HCL [Concomitant]
  6. AMBIEN [Concomitant]
  7. DONITOL (DOLONIL) [Concomitant]
  8. XANAX [Concomitant]
  9. TRAZADONE (TRAZODONE) [Concomitant]
  10. ACID MEDICINE (ALL OTHER THERAPEUTIC PRODUCTS) [Concomitant]
  11. OTHER MEDICATIONS (ALL OTHER THERAPEUTIC PRODUCTS) [Concomitant]

REACTIONS (3)
  - DYSPNOEA [None]
  - ENTEROCOLITIS INFECTIOUS [None]
  - SYNCOPE [None]
